FAERS Safety Report 13317282 (Version 7)
Quarter: 2018Q4

REPORT INFORMATION
  Report Type: Spontaneous
  Country: GB (occurrence: GB)
  Receive Date: 20170310
  Receipt Date: 20181018
  Transmission Date: 20190204
  Serious: Yes (Hospitalization, Disabling, Other)
  Sender: FDA-Public Use
  Company Number: GB-SUN PHARMACEUTICAL INDUSTRIES LTD-2017RR-135095

PATIENT
  Age: 83 Year
  Sex: Female

DRUGS (1)
  1. CIPROFLOXACIN. [Suspect]
     Active Substance: CIPROFLOXACIN
     Indication: PRODUCT USED FOR UNKNOWN INDICATION
     Dosage: 1 DF, TOTAL, FOUR YEARS AGO
     Route: 065
     Dates: end: 20130303

REACTIONS (54)
  - Pain in extremity [Unknown]
  - Osteoarthritis [Unknown]
  - Nausea [Unknown]
  - Arthralgia [Unknown]
  - Back injury [Unknown]
  - Erythema [Not Recovered/Not Resolved]
  - Ear pain [Unknown]
  - Confusional state [Unknown]
  - Inflammation [Unknown]
  - Impaired healing [Unknown]
  - Musculoskeletal discomfort [Unknown]
  - Stress [Unknown]
  - Anal incontinence [Unknown]
  - Asthenia [Unknown]
  - Tendon disorder [Unknown]
  - Joint injury [Unknown]
  - Hand fracture [Unknown]
  - Hypersensitivity [Unknown]
  - Skin ulcer [Unknown]
  - Musculoskeletal stiffness [Unknown]
  - Alopecia [Unknown]
  - Urinary incontinence [Unknown]
  - Epistaxis [Unknown]
  - Visual impairment [Unknown]
  - Dizziness [Unknown]
  - Crying [Unknown]
  - Enuresis [Unknown]
  - Agitation [Unknown]
  - Balance disorder [Unknown]
  - Rash [Unknown]
  - Decreased appetite [Unknown]
  - Peripheral swelling [Unknown]
  - Insomnia [Unknown]
  - Myalgia [Unknown]
  - Peripheral swelling [Unknown]
  - Headache [Unknown]
  - Noninfective gingivitis [Unknown]
  - Spinal pain [Unknown]
  - Arthritis [Unknown]
  - Paraesthesia [Unknown]
  - Nerve injury [Unknown]
  - Fall [Unknown]
  - Neuropathy peripheral [Unknown]
  - Gastrointestinal disorder [Unknown]
  - Haemorrhage [Unknown]
  - Muscular weakness [Unknown]
  - Bladder disorder [Unknown]
  - Malaise [Unknown]
  - Facial pain [Unknown]
  - Dry skin [Unknown]
  - Contusion [Unknown]
  - Emotional disorder [Unknown]
  - Chest pain [Unknown]
  - Poor quality sleep [Unknown]

NARRATIVE: CASE EVENT DATE: 20130303
